FAERS Safety Report 8261948-3 (Version None)
Quarter: 2012Q2

REPORT INFORMATION
  Report Type: 
  Country: None (occurrence: None)
  Receive Date: 20120405
  Receipt Date: 20120327
  Transmission Date: 20120825
  Serious: Yes (Life-Threatening, Hospitalization)
  Sender: FDA-Public Use
  Company Number: JP-ABBOTT-12P-087-0899268-00

PATIENT
  Sex: Female
  Weight: 48 kg

DRUGS (4)
  1. HUMIRA [Suspect]
     Indication: RHEUMATOID ARTHRITIS
     Route: 058
     Dates: start: 20101111, end: 20110106
  2. RABEPRAZOLE SODIUM [Concomitant]
     Indication: GASTROOESOPHAGEAL REFLUX DISEASE
     Route: 048
     Dates: start: 20101205, end: 20110512
  3. SULFASALAZINE [Concomitant]
     Indication: RHEUMATOID ARTHRITIS
     Route: 048
     Dates: start: 20101125, end: 20110512
  4. LANSOPRAZOLE [Concomitant]
     Indication: GASTROOESOPHAGEAL REFLUX DISEASE
     Route: 048
     Dates: start: 20101125, end: 20101204

REACTIONS (7)
  - INTERSTITIAL LUNG DISEASE [None]
  - NASOPHARYNGITIS [None]
  - HYPOXIA [None]
  - DYSPNOEA [None]
  - COUGH [None]
  - PYREXIA [None]
  - VIRAL INFECTION [None]
